FAERS Safety Report 15955490 (Version 1)
Quarter: 2019Q1

REPORT INFORMATION
  Report Type: Spontaneous
  Country: MM (occurrence: MM)
  Receive Date: 20190213
  Receipt Date: 20190213
  Transmission Date: 20190417
  Serious: Yes (Hospitalization, Disabling)
  Sender: FDA-Public Use
  Company Number: MM-009507513-1902MMR002864

PATIENT
  Age: 27 Year
  Sex: Male
  Weight: 42 kg

DRUGS (10)
  1. AMOXCLAV [Suspect]
     Active Substance: AMOXICILLIN\CLAVULANIC ACID
     Indication: PULMONARY TUBERCULOSIS
     Dosage: 625 MILLIGRAM, BID
     Route: 048
     Dates: start: 20180917
  2. CLOFAZIMINE [Suspect]
     Active Substance: CLOFAZIMINE
     Indication: PULMONARY TUBERCULOSIS
     Dosage: 100 MG, BID
     Route: 048
     Dates: start: 20180917
  3. IMIPENEM AND CILASTATIN [Suspect]
     Active Substance: CILASTATIN SODIUM\IMIPENEM
     Indication: PULMONARY TUBERCULOSIS
     Dosage: 1 G, BID
     Route: 042
     Dates: start: 20180917
  4. LINEZOLID. [Suspect]
     Active Substance: LINEZOLID
     Indication: PULMONARY TUBERCULOSIS
     Dosage: 600 MG, QD
     Route: 048
     Dates: start: 20180917
  5. CLOFAZIMINE [Suspect]
     Active Substance: CLOFAZIMINE
     Dosage: 100 MG, QD
     Route: 048
     Dates: start: 20181117
  6. DELAMANID [Suspect]
     Active Substance: DELAMANID
     Indication: PULMONARY TUBERCULOSIS
     Dosage: 100 MG, BID
     Route: 048
     Dates: start: 20180917
  7. BEDAQUILINE [Suspect]
     Active Substance: BEDAQUILINE
     Indication: PULMONARY TUBERCULOSIS
     Dosage: 400 MG, QD (FOR 2 WEEKS)
     Route: 048
     Dates: start: 20180917
  8. BEDAQUILINE [Suspect]
     Active Substance: BEDAQUILINE
     Dosage: 200 MG, TIW
     Route: 048
     Dates: start: 20181001
  9. NEUROVIT (PYRIDOXINE (+) THIAMINE) [Concomitant]
     Dosage: UNK
     Route: 048
     Dates: start: 20181219
  10. PYRIDOXINE [Concomitant]
     Active Substance: PYRIDOXINE
     Indication: PROPHYLAXIS
     Dosage: UNK
     Dates: start: 20180917

REACTIONS (2)
  - Tinnitus [Unknown]
  - Hypoacusis [Unknown]

NARRATIVE: CASE EVENT DATE: 20190118
